FAERS Safety Report 4507030-X (Version None)
Quarter: 2004Q4

REPORT INFORMATION
  Report Type: 
  Country: None (occurrence: None)
  Receive Date: 20041122
  Receipt Date: 20041027
  Transmission Date: 20050328
  Serious: Yes (Disabling, Other)
  Sender: FDA-Public Use
  Company Number: GB-MERCK-0410GBR00317

PATIENT
  Age: 55 Year
  Sex: Male

DRUGS (2)
  1. ZOCOR [Suspect]
     Indication: BLOOD CHOLESTEROL INCREASED
     Route: 048
     Dates: start: 20040907, end: 20041019
  2. ACETAMINOPHEN AND CAFFEINE AND CODEINE PHOSPHATE [Concomitant]
     Route: 065

REACTIONS (2)
  - HAEMATOMA [None]
  - MUSCLE INJURY [None]
